FAERS Safety Report 5203148-7 (Version None)
Quarter: 2006Q4

REPORT INFORMATION
  Report Type: 
  Country: None (occurrence: None)
  Receive Date: 20061016
  Receipt Date: 20060208
  Transmission Date: 20070319
  Serious: Yes (Other)
  Sender: FDA-Public Use
  Company Number: 2006019944

PATIENT
  Sex: Female

DRUGS (6)
  1. NEURONTIN [Suspect]
     Indication: MIGRAINE
     Dates: start: 19990101
  2. ZOLOFT [Suspect]
     Indication: ILL-DEFINED DISORDER
  3. PROZAC [Suspect]
     Indication: ILL-DEFINED DISORDER
  4. PAXIL [Suspect]
     Indication: ILL-DEFINED DISORDER
  5. PERCOCET [Concomitant]
  6. DARVOCET [Concomitant]

REACTIONS (5)
  - DEPRESSION [None]
  - DRUG INEFFECTIVE [None]
  - MIGRAINE [None]
  - PAIN [None]
  - SUICIDE ATTEMPT [None]
